FAERS Safety Report 22941878 (Version 3)
Quarter: 2023Q4

REPORT INFORMATION
  Report Type: Report from Study
  Country: CA (occurrence: CA)
  Receive Date: 20230914
  Receipt Date: 20231006
  Transmission Date: 20240110
  Serious: Yes (Other)
  Sender: FDA-Public Use
  Company Number: CA-JNJFOC-20220424583

PATIENT
  Sex: Male
  Weight: 149 kg

DRUGS (1)
  1. REMICADE [Suspect]
     Active Substance: INFLIXIMAB
     Indication: Hidradenitis
     Dosage: BATCH: MCM88012, EXPIRY: 28-FEB-2025, BATCH NUMBER: 22K082, EXPIRY: 30-NOV-2025?ADDITIONAL THERAPY S
     Route: 041
     Dates: start: 20190510

REACTIONS (3)
  - Localised infection [Recovered/Resolved]
  - Hidradenitis [Recovering/Resolving]
  - Skin fissures [Unknown]

NARRATIVE: CASE EVENT DATE: 20220101
